FAERS Safety Report 11642892 (Version 12)
Quarter: 2019Q3

REPORT INFORMATION
  Report Type: Report from Study
  Country: CA (occurrence: CA)
  Receive Date: 20151020
  Receipt Date: 20190822
  Transmission Date: 20191004
  Serious: Yes (Hospitalization, Other)
  Sender: FDA-Public Use
  Company Number: CA-ROCHE-1633263

PATIENT
  Age: 62 Year
  Sex: Female

DRUGS (16)
  1. CELLCEPT [Suspect]
     Active Substance: MYCOPHENOLATE MOFETIL\MYCOPHENOLATE MOFETIL HYDROCHLORIDE
     Indication: PRODUCT USED FOR UNKNOWN INDICATION
     Route: 065
  2. IMURAN [Concomitant]
     Active Substance: AZATHIOPRINE
  3. SYNTHROID [Concomitant]
     Active Substance: LEVOTHYROXINE SODIUM
  4. LASIX [Concomitant]
     Active Substance: FUROSEMIDE
  5. ARANESP [Concomitant]
     Active Substance: DARBEPOETIN ALFA
  6. SEPTRA [Concomitant]
     Active Substance: SULFAMETHOXAZOLE\TRIMETHOPRIM
     Dosage: 80/400
     Route: 065
  7. SEPTRA [Concomitant]
     Active Substance: SULFAMETHOXAZOLE\TRIMETHOPRIM
     Dosage: 80/400
     Route: 065
     Dates: start: 201812, end: 201907
  8. PREDNISONE. [Concomitant]
     Active Substance: PREDNISONE
  9. BISOPROLOL [Concomitant]
     Active Substance: BISOPROLOL
  10. COZARTAN [Concomitant]
  11. RITUXAN [Suspect]
     Active Substance: RITUXIMAB
     Indication: MICROSCOPIC POLYANGIITIS
     Dosage: MOST RECENT RITUXIMAB RECEIVED ON 04/JUL/2018
     Route: 042
     Dates: start: 20130814
  12. ACETAMINOPHEN. [Concomitant]
     Active Substance: ACETAMINOPHEN
     Indication: PREMEDICATION
     Route: 048
     Dates: start: 20130814
  13. RITUXAN [Suspect]
     Active Substance: RITUXIMAB
     Indication: VASCULITIS
  14. METHYLPREDNISOLONE. [Concomitant]
     Active Substance: METHYLPREDNISOLONE
     Indication: PREMEDICATION
     Route: 042
     Dates: start: 20130814
  15. CANDESARTAN. [Concomitant]
     Active Substance: CANDESARTAN
  16. DIPHENHYDRAMINE HCL [Concomitant]
     Active Substance: DIPHENHYDRAMINE HYDROCHLORIDE
     Indication: PREMEDICATION
     Route: 048
     Dates: start: 20130814

REACTIONS (20)
  - Vasculitis [Not Recovered/Not Resolved]
  - Blood pressure increased [Unknown]
  - Off label use [Unknown]
  - Dyspnoea [Recovering/Resolving]
  - Blood creatinine increased [Unknown]
  - Haematocrit decreased [Unknown]
  - Reticulocyte count decreased [Unknown]
  - Haemoglobin decreased [Unknown]
  - Blood potassium increased [Unknown]
  - White blood cell count decreased [Unknown]
  - Atypical pneumonia [Unknown]
  - Oxygen saturation decreased [Unknown]
  - Cardiac failure [Unknown]
  - Blood phosphorus increased [Unknown]
  - Pyrexia [Recovered/Resolved]
  - Blood urea increased [Unknown]
  - Renal disorder [Unknown]
  - Blood pressure systolic increased [Unknown]
  - Red blood cell count decreased [Unknown]
  - C-reactive protein increased [Unknown]

NARRATIVE: CASE EVENT DATE: 2015
